FAERS Safety Report 25588744 (Version 1)
Quarter: 2025Q3

REPORT INFORMATION
  Report Type: Spontaneous
  Country: US (occurrence: US)
  Receive Date: 20250722
  Receipt Date: 20250722
  Transmission Date: 20251020
  Serious: No
  Sender: AUROBINDO
  Company Number: US-AUROBINDO-AUR-APL-2025-029827

PATIENT
  Age: 81 Year
  Sex: Female
  Weight: 63.5 kg

DRUGS (1)
  1. MESALAMINE [Suspect]
     Active Substance: MESALAMINE
     Indication: Crohn^s disease
     Dosage: 04 DOSAGE FORM, ONCE A DAY (TOOK ABOUT 12 CAPSULES FROM THE AFFECTED BOTTLE)
     Route: 048

REACTIONS (3)
  - Product taste abnormal [Unknown]
  - Product odour abnormal [Unknown]
  - Product complaint [Unknown]
